FAERS Safety Report 20964960 (Version 1)
Quarter: 2022Q2

REPORT INFORMATION
  Report Type: Spontaneous
  Country: FR (occurrence: None)
  Receive Date: 20220616
  Receipt Date: 20220616
  Transmission Date: 20220721
  Serious: Yes (Other)
  Sender: FDA-Public Use
  Company Number: 2022A213412

PATIENT
  Sex: Female

DRUGS (3)
  1. QUETIAPINE [Suspect]
     Active Substance: QUETIAPINE
     Dosage: 250.0MG UNKNOWN
     Route: 064
     Dates: end: 20210531
  2. VENLAFAXINE [Suspect]
     Active Substance: VENLAFAXINE HYDROCHLORIDE
     Dosage: 187.5MG UNKNOWN
     Route: 064
     Dates: end: 20210531
  3. PRAZEPAM [Suspect]
     Active Substance: PRAZEPAM
     Dosage: 20.0MG UNKNOWN
     Route: 064
     Dates: end: 20210531

REACTIONS (2)
  - Hypotonia [Not Recovered/Not Resolved]
  - Myoclonus [Recovered/Resolved]

NARRATIVE: CASE EVENT DATE: 20210531
